FAERS Safety Report 10639776 (Version 1)
Quarter: 2014Q4

REPORT INFORMATION
  Report Type: Spontaneous
  Country: BR (occurrence: BR)
  Receive Date: 20141209
  Receipt Date: 20141209
  Transmission Date: 20150529
  Serious: Yes (Death, Other)
  Sender: FDA-Public Use
  Company Number: BR-JNJFOC-20141202645

PATIENT

DRUGS (1)
  1. IBUPROFEN. [Suspect]
     Active Substance: IBUPROFEN
     Indication: PATENT DUCTUS ARTERIOSUS REPAIR
     Route: 065

REACTIONS (6)
  - Retinopathy of prematurity [Unknown]
  - Necrotising colitis [Unknown]
  - Intraventricular haemorrhage [Unknown]
  - Death [Fatal]
  - Bronchopulmonary dysplasia [Unknown]
  - Product use issue [Unknown]
